FAERS Safety Report 21417085 (Version 7)
Quarter: 2023Q1

REPORT INFORMATION
  Report Type: Report from Study
  Country: US (occurrence: US)
  Receive Date: 20221006
  Receipt Date: 20230126
  Transmission Date: 20230418
  Serious: Yes (Other)
  Sender: FDA-Public Use
  Company Number: US-KYOWAKIRIN-2022BKK015506

PATIENT

DRUGS (8)
  1. MOGAMULIZUMAB [Suspect]
     Active Substance: MOGAMULIZUMAB
     Indication: Product used for unknown indication
     Dosage: UNK
     Route: 042
  2. MOGAMULIZUMAB [Suspect]
     Active Substance: MOGAMULIZUMAB
     Dosage: CYCLE 1 DAY 1
     Route: 065
     Dates: start: 20220625
  3. MOGAMULIZUMAB [Suspect]
     Active Substance: MOGAMULIZUMAB
     Dosage: CYCLE 2 DAY 1
     Route: 065
     Dates: start: 20220728
  4. MOGAMULIZUMAB [Suspect]
     Active Substance: MOGAMULIZUMAB
     Dosage: CYCLE 3 DAY 1
     Route: 065
     Dates: start: 20220825
  5. MOGAMULIZUMAB [Suspect]
     Active Substance: MOGAMULIZUMAB
     Dosage: CYCLE 3 DAY 15
     Route: 065
     Dates: start: 20220908
  6. MOGAMULIZUMAB [Suspect]
     Active Substance: MOGAMULIZUMAB
     Dosage: CYCLE 4 DAY 1
     Route: 065
     Dates: start: 20220922
  7. MOGAMULIZUMAB [Suspect]
     Active Substance: MOGAMULIZUMAB
     Dosage: CYCLE 4 DAY 15
     Route: 065
     Dates: start: 20221006
  8. MOGAMULIZUMAB [Suspect]
     Active Substance: MOGAMULIZUMAB
     Dosage: UNK
     Route: 042

REACTIONS (19)
  - Deafness [Unknown]
  - Immobile [Unknown]
  - Feeling abnormal [Unknown]
  - Incontinence [Unknown]
  - Skin lesion removal [Unknown]
  - Stress [Unknown]
  - Feeling abnormal [Unknown]
  - Condition aggravated [Unknown]
  - Weight increased [Unknown]
  - Abdominal discomfort [Unknown]
  - Furuncle [Unknown]
  - Back pain [Unknown]
  - Poor quality sleep [Unknown]
  - Blood pressure increased [Unknown]
  - Abdominal pain upper [Unknown]
  - Skin lesion [Unknown]
  - Malaise [Unknown]
  - Product dose omission issue [Unknown]
  - Malaise [Unknown]

NARRATIVE: CASE EVENT DATE: 20220101
